FAERS Safety Report 4393309-1 (Version None)
Quarter: 2004Q3

REPORT INFORMATION
  Report Type: 
  Country: None (occurrence: None)
  Receive Date: 20040701
  Receipt Date: 20040616
  Transmission Date: 20050211
  Serious: Yes (Hospitalization)
  Sender: FDA-Public Use
  Company Number: FR_040504138

PATIENT
  Age: 50 Year
  Sex: Female

DRUGS (2)
  1. GEMZAR [Suspect]
     Indication: ADENOCARCINOMA
     Dosage: 1000 MG/1 OTHER
     Route: 050
     Dates: start: 20040401, end: 20040401
  2. GEMZAR [Suspect]
     Indication: METASTATIC NEOPLASM
     Dosage: 1000 MG/1 OTHER
     Route: 050
     Dates: start: 20040401, end: 20040401

REACTIONS (3)
  - DILATATION VENTRICULAR [None]
  - PULMONARY HYPERTENSION [None]
  - RIGHT VENTRICULAR FAILURE [None]
